FAERS Safety Report 18196594 (Version 1)
Quarter: 2020Q3

REPORT INFORMATION
  Report Type: Spontaneous
  Country: US (occurrence: US)
  Receive Date: 20200825
  Receipt Date: 20200825
  Transmission Date: 20201103
  Serious: Yes (Hospitalization, Other)
  Sender: FDA-Public Use
  Company Number: US-ALEMBIC PHARMACUETICALS LIMITED-2020SCAL000369

PATIENT

DRUGS (2)
  1. CLONAZEPAM. [Suspect]
     Active Substance: CLONAZEPAM
     Indication: RESTLESS LEGS SYNDROME
     Dosage: 90 TABLETS OF 0.25 MG
  2. VERAPAMIL [Suspect]
     Active Substance: VERAPAMIL HYDROCHLORIDE
     Indication: MIGRAINE
     Dosage: 125 MG 60 TABLETS OF EXTENDED RELEASE

REACTIONS (14)
  - Glomerular filtration rate decreased [Unknown]
  - Atelectasis [Unknown]
  - Suicide attempt [Unknown]
  - Electrocardiogram QRS complex prolonged [Unknown]
  - Coma scale abnormal [Unknown]
  - Hypotension [Recovered/Resolved]
  - Hypoxia [Recovering/Resolving]
  - Aspartate aminotransferase increased [Unknown]
  - Blood glucose increased [Unknown]
  - Overdose [Unknown]
  - Acute respiratory distress syndrome [Recovering/Resolving]
  - Dysarthria [Unknown]
  - Bradycardia [Recovered/Resolved]
  - Mental status changes [Unknown]
